FAERS Safety Report 17356290 (Version 1)
Quarter: 2020Q1

REPORT INFORMATION
  Report Type: Spontaneous
  Country: US (occurrence: US)
  Receive Date: 20200131
  Receipt Date: 20200131
  Transmission Date: 20200409
  Serious: No
  Sender: FDA-Public Use
  Company Number: US-ASTRAZENECA-2020SE02280

PATIENT
  Age: 56 Year
  Sex: Female
  Weight: 55.3 kg

DRUGS (1)
  1. SYMBICORT [Suspect]
     Active Substance: BUDESONIDE\FORMOTEROL FUMARATE DIHYDRATE
     Indication: ASTHMA
     Dosage: 160/4.5 MCG,2 PUFFS TWO TIMES A DAY
     Route: 055
     Dates: start: 20191231, end: 20200102

REACTIONS (7)
  - Oropharyngeal pain [Unknown]
  - Insomnia [Unknown]
  - Oral discomfort [Not Recovered/Not Resolved]
  - Throat irritation [Not Recovered/Not Resolved]
  - Productive cough [Unknown]
  - Tongue discomfort [Not Recovered/Not Resolved]
  - Tremor [Unknown]
